FAERS Safety Report 6793958-7 (Version None)
Quarter: 2010Q2

REPORT INFORMATION
  Report Type: 
  Country: None (occurrence: None)
  Receive Date: 20100624
  Receipt Date: 20041022
  Transmission Date: 20101027
  Serious: Yes (Death, Hospitalization)
  Sender: FDA-Public Use
  Company Number: US-PFIZER INC-23100207

PATIENT
  Age: 22 Year
  Sex: Female

DRUGS (1)
  1. ARGATROBAN [Suspect]

REACTIONS (1)
  - THROMBOSIS [None]
